FAERS Safety Report 10398469 (Version 1)
Quarter: 2014Q3

REPORT INFORMATION
  Report Type: Spontaneous
  Country: US (occurrence: US)
  Receive Date: 20140821
  Receipt Date: 20140821
  Transmission Date: 20150326
  Serious: No
  Sender: FDA-Public Use
  Company Number: US-ZOGENIX, INC.-2014ZX000132

PATIENT
  Age: 64 Year
  Sex: Male
  Weight: 122.58 kg

DRUGS (1)
  1. ZOHYDRO [Suspect]
     Active Substance: HYDROCODONE BITARTRATE
     Indication: PAIN
     Dates: start: 20140509, end: 20140512

REACTIONS (3)
  - Constipation [Recovered/Resolved]
  - Inappropriate schedule of drug administration [Recovered/Resolved]
  - Pain [Unknown]

NARRATIVE: CASE EVENT DATE: 20140509
